FAERS Safety Report 19435131 (Version 2)
Quarter: 2021Q3

REPORT INFORMATION
  Report Type: Other
  Country: PL (occurrence: PL)
  Receive Date: 20210617
  Receipt Date: 20210713
  Transmission Date: 20211014
  Serious: Yes (Death, Life-Threatening, Hospitalization, Other)
  Sender: FDA-Public Use
  Company Number: PL-CELLTRION INC.-2021PL008030

PATIENT

DRUGS (38)
  1. VENCLYXTO [Suspect]
     Active Substance: VENETOCLAX
     Indication: CHRONIC LYMPHOCYTIC LEUKAEMIA
     Dosage: UNK
     Route: 048
     Dates: start: 20201209, end: 202012
  2. VENCLYXTO [Suspect]
     Active Substance: VENETOCLAX
     Dosage: UNK
     Route: 048
     Dates: start: 20201229
  3. VENCLYXTO [Suspect]
     Active Substance: VENETOCLAX
     Dosage: UNK
     Route: 048
     Dates: start: 20201229
  4. VENCLYXTO [Suspect]
     Active Substance: VENETOCLAX
     Dosage: UNK
     Route: 048
     Dates: start: 20201229
  5. VENCLYXTO [Suspect]
     Active Substance: VENETOCLAX
     Dosage: UNK
     Route: 048
     Dates: start: 20210108, end: 202101
  6. VENCLYXTO [Suspect]
     Active Substance: VENETOCLAX
     Dosage: UNK
     Route: 048
     Dates: start: 20201223, end: 202012
  7. DEXAMETHASONE. [Concomitant]
     Active Substance: DEXAMETHASONE
     Indication: RESPIRATORY FAILURE
     Dosage: 8 MG, QD
     Route: 042
     Dates: start: 20210215, end: 20210219
  8. VENCLYXTO [Suspect]
     Active Substance: VENETOCLAX
     Dosage: UNK
     Route: 048
     Dates: start: 20201223
  9. VENCLYXTO [Suspect]
     Active Substance: VENETOCLAX
     Dosage: UNK
     Route: 048
     Dates: start: 20201223, end: 202012
  10. VENCLYXTO [Suspect]
     Active Substance: VENETOCLAX
     Dosage: UNK
     Route: 048
     Dates: start: 20201229
  11. VENCLYXTO [Suspect]
     Active Substance: VENETOCLAX
     Dosage: UNK
     Route: 048
     Dates: start: 20210108, end: 202101
  12. VENCLYXTO [Suspect]
     Active Substance: VENETOCLAX
     Dosage: UNK
     Route: 048
     Dates: start: 20210108, end: 202101
  13. VENCLYXTO [Suspect]
     Active Substance: VENETOCLAX
     Dosage: UNK
     Route: 048
     Dates: start: 20210118
  14. VENCLYXTO [Suspect]
     Active Substance: VENETOCLAX
     Dosage: UNK
     Route: 048
     Dates: start: 20210118
  15. BISEPTOL [Concomitant]
     Active Substance: SULFAMETHOXAZOLE\TRIMETHOPRIM
     Indication: PROPHYLAXIS
     Dosage: 960 MG, QD; INTRAUTERINE TABLET
     Route: 042
     Dates: start: 20210215, end: 20210219
  16. VENCLYXTO [Suspect]
     Active Substance: VENETOCLAX
     Dosage: UNK
     Route: 048
     Dates: start: 20201216, end: 202012
  17. VENCLYXTO [Suspect]
     Active Substance: VENETOCLAX
     Dosage: UNK
     Route: 048
     Dates: start: 20201216, end: 202012
  18. VENCLYXTO [Suspect]
     Active Substance: VENETOCLAX
     Dosage: UNK
     Route: 048
     Dates: start: 20201229
  19. VENCLYXTO [Suspect]
     Active Substance: VENETOCLAX
     Dosage: UNK
     Route: 048
     Dates: start: 20210118
  20. FLUCONAZOLE. [Concomitant]
     Active Substance: FLUCONAZOLE
     Indication: FUNGAL INFECTION
     Dosage: 200 MG, BID
     Route: 042
     Dates: start: 20210215, end: 20210219
  21. CEFTAZIDIME. [Concomitant]
     Active Substance: CEFTAZIDIME
     Indication: PNEUMONIA
     Dosage: 2000 MG, QD
     Route: 042
     Dates: start: 20210215, end: 20210219
  22. RITUXIMAB (UNKNOWN) [Suspect]
     Active Substance: RITUXIMAB
     Indication: CHRONIC LYMPHOCYTIC LEUKAEMIA
     Dosage: 517 MG, EVERY 28 DAYS
     Route: 042
     Dates: start: 20210118, end: 20210118
  23. VENCLYXTO [Suspect]
     Active Substance: VENETOCLAX
     Dosage: UNK
     Route: 048
     Dates: start: 20201209, end: 202012
  24. VENCLYXTO [Suspect]
     Active Substance: VENETOCLAX
     Dosage: UNK
     Route: 048
     Dates: start: 20201216, end: 202012
  25. VENCLYXTO [Suspect]
     Active Substance: VENETOCLAX
     Dosage: UNK
     Route: 048
     Dates: start: 20201223, end: 202012
  26. VENCLYXTO [Suspect]
     Active Substance: VENETOCLAX
     Dosage: UNK
     Route: 048
     Dates: start: 20210108, end: 202101
  27. VENCLYXTO [Suspect]
     Active Substance: VENETOCLAX
     Dosage: UNK
     Route: 048
     Dates: start: 20210118
  28. VENCLYXTO [Suspect]
     Active Substance: VENETOCLAX
     Dosage: UNK
     Route: 048
     Dates: start: 20201209, end: 202012
  29. VENCLYXTO [Suspect]
     Active Substance: VENETOCLAX
     Dosage: UNK
     Route: 048
     Dates: start: 20201216, end: 202012
  30. VENCLYXTO [Suspect]
     Active Substance: VENETOCLAX
     Dosage: UNK
     Route: 048
     Dates: start: 20201223, end: 202012
  31. VENCLYXTO [Suspect]
     Active Substance: VENETOCLAX
     Dosage: UNK
     Route: 048
     Dates: start: 20210108, end: 202101
  32. VENCLYXTO [Suspect]
     Active Substance: VENETOCLAX
     Dosage: UNK
     Route: 048
     Dates: start: 20210118
  33. VENCLYXTO [Suspect]
     Active Substance: VENETOCLAX
     Dosage: UNK
     Route: 048
     Dates: start: 20201209, end: 202012
  34. VENCLYXTO [Suspect]
     Active Substance: VENETOCLAX
     Dosage: UNK
     Route: 048
     Dates: start: 20201209, end: 202012
  35. VENCLYXTO [Suspect]
     Active Substance: VENETOCLAX
     Dosage: UNK
     Route: 048
     Dates: start: 20201216, end: 202012
  36. FUROSEMIDE. [Concomitant]
     Active Substance: FUROSEMIDE
     Indication: CIRCULATORY COLLAPSE
     Dosage: 20 MG, QD
     Route: 042
     Dates: start: 20210215, end: 20210219
  37. CIPROFLOXACIN. [Concomitant]
     Active Substance: CIPROFLOXACIN
     Indication: PNEUMONIA
     Dosage: 400 MG, QD
     Route: 042
     Dates: start: 20210215, end: 20210219
  38. HEVIRAN [Concomitant]
     Active Substance: ACYCLOVIR
     Indication: PROPHYLAXIS
     Dosage: 400 MG, QD
     Route: 048
     Dates: start: 20210215, end: 20210219

REACTIONS (6)
  - Weight decreased [Fatal]
  - Chronic lymphocytic leukaemia transformation [Fatal]
  - Disease progression [Fatal]
  - Respiratory failure [Fatal]
  - Infection [Fatal]
  - Underdose [Unknown]

NARRATIVE: CASE EVENT DATE: 20210125
